FAERS Safety Report 4887954-4 (Version None)
Quarter: 2006Q1

REPORT INFORMATION
  Report Type: 
  Country: None (occurrence: None)
  Receive Date: 20060123
  Receipt Date: 20050421
  Transmission Date: 20060701
  Serious: Yes (Hospitalization)
  Sender: FDA-Public Use
  Company Number: US-MERCK-0504USA04257

PATIENT
  Age: 37 Year
  Sex: Female

DRUGS (1)
  1. VIOXX [Suspect]
     Indication: PAIN
     Route: 048
     Dates: start: 20010101, end: 20040101

REACTIONS (29)
  - ANOREXIA [None]
  - ASTHENIA [None]
  - ASTHMA [None]
  - BLOOD POTASSIUM DECREASED [None]
  - CHEST PAIN [None]
  - CHOLELITHIASIS [None]
  - CONSTIPATION [None]
  - COUGH [None]
  - CYSTITIS [None]
  - CYSTITIS INTERSTITIAL [None]
  - DIVERTICULUM [None]
  - DROOLING [None]
  - FATIGUE [None]
  - FUNGAL INFECTION [None]
  - HEADACHE [None]
  - HYPERADRENALISM [None]
  - INCONTINENCE [None]
  - INTERVERTEBRAL DISC DISPLACEMENT [None]
  - IRRITABLE BOWEL SYNDROME [None]
  - JOINT SPRAIN [None]
  - JOINT SWELLING [None]
  - MUSCLE SPASMS [None]
  - MYOFASCIAL PAIN SYNDROME [None]
  - NEPHROLITHIASIS [None]
  - OSTEOARTHRITIS [None]
  - OVARIAN CYST [None]
  - PAIN IN EXTREMITY [None]
  - PHARYNGOLARYNGEAL PAIN [None]
  - RADICULITIS LUMBOSACRAL [None]
